FAERS Safety Report 9120650 (Version 1)
Quarter: 2013Q1

REPORT INFORMATION
  Report Type: Spontaneous
  Country: CN (occurrence: CN)
  Receive Date: 20130226
  Receipt Date: 20130226
  Transmission Date: 20140127
  Serious: Yes (Other)
  Sender: FDA-Public Use
  Company Number: CN-MYLANLABS-2013S1003354

PATIENT
  Age: 30 Year
  Sex: Male

DRUGS (3)
  1. TACROLIMUS [Suspect]
     Dosage: TARGET RANGE: 12-15 NG/ML; REDUCED TO 8-12 NG/ML, THEN FURTHER TO 5-7 NG/ML
     Route: 065
  2. MYCOPHENOLATE MOFETIL [Concomitant]
     Route: 065
  3. PREDNISONE [Concomitant]
     Dosage: 10 MG/DAY; INCREASED TO 20 MG/DAY
     Route: 065

REACTIONS (3)
  - Optic ischaemic neuropathy [Recovering/Resolving]
  - Posterior reversible encephalopathy syndrome [Recovering/Resolving]
  - Optic atrophy [Not Recovered/Not Resolved]
